FAERS Safety Report 5643101-2 (Version None)
Quarter: 2008Q1

REPORT INFORMATION
  Report Type: 
  Country: None (occurrence: None)
  Receive Date: 20080227
  Receipt Date: 20080227
  Transmission Date: 20080703
  Serious: No
  Sender: FDA-Public Use
  Company Number: None

PATIENT
  Age: 32 Year
  Sex: Female
  Weight: 63.5036 kg

DRUGS (1)
  1. BOTOX [Suspect]
     Indication: DRUG THERAPY
     Dates: start: 20080214, end: 20080214

REACTIONS (9)
  - ARTHRALGIA [None]
  - BACK PAIN [None]
  - HEADACHE [None]
  - HYPOAESTHESIA [None]
  - JOINT SWELLING [None]
  - MUSCULOSKELETAL PAIN [None]
  - MYALGIA [None]
  - PARAESTHESIA [None]
  - RASH [None]
